FAERS Safety Report 16895424 (Version 1)
Quarter: 2019Q4

REPORT INFORMATION
  Report Type: Spontaneous
  Country: JP (occurrence: JP)
  Receive Date: 20191008
  Receipt Date: 20191008
  Transmission Date: 20200122
  Serious: Yes (Hospitalization, Other)
  Sender: FDA-Public Use
  Company Number: JP-VALIDUS PHARMACEUTICALS LLC-JP-2019VAL000565

PATIENT

DRUGS (4)
  1. LASIX [Suspect]
     Active Substance: FUROSEMIDE
     Dosage: GRADUAL DOSE REDUCTION
     Route: 048
  2. ELDECALCITOL [Suspect]
     Active Substance: ELDECALCITOL
     Indication: OSTEOPOROSIS
     Dosage: 0.75 ?G, QD
     Route: 065
  3. LASIX [Suspect]
     Active Substance: FUROSEMIDE
     Indication: OEDEMA
     Dosage: 40 MG, QD
     Route: 048
  4. LASIX [Suspect]
     Active Substance: FUROSEMIDE
     Dosage: 40 MG, QD
     Route: 048

REACTIONS (16)
  - Crystal nephropathy [Unknown]
  - Chronic kidney disease [Unknown]
  - Malaise [Unknown]
  - Acute kidney injury [Unknown]
  - Diarrhoea [Unknown]
  - Glomerular filtration rate decreased [Unknown]
  - Hypercalciuria [Unknown]
  - Dehydration [Unknown]
  - Renal cyst haemorrhage [Unknown]
  - Oliguria [Unknown]
  - Vomiting [Unknown]
  - Pseudo-Bartter syndrome [Unknown]
  - Proteinuria [Unknown]
  - Renal cyst [Unknown]
  - Crystal urine present [Unknown]
  - Metabolic acidosis [Unknown]
